FAERS Safety Report 23171095 (Version 1)
Quarter: 2023Q4

REPORT INFORMATION
  Report Type: Spontaneous
  Country: US (occurrence: None)
  Receive Date: 20231110
  Receipt Date: 20231110
  Transmission Date: 20240110
  Serious: Yes (Hospitalization)
  Sender: FDA-Public Use
  Company Number: None

PATIENT
  Age: 62 Year
  Sex: Male
  Weight: 102.6 kg

DRUGS (1)
  1. TECVAYLI [Suspect]
     Active Substance: TECLISTAMAB-CQYV
     Indication: Plasma cell myeloma refractory
     Dosage: OTHER FREQUENCY : ONCE;?
     Route: 058
     Dates: start: 20231030

REACTIONS (3)
  - Cytokine release syndrome [None]
  - Blood lactic acid increased [None]
  - Blood creatinine increased [None]

NARRATIVE: CASE EVENT DATE: 20231108
